FAERS Safety Report 6723241-7 (Version None)
Quarter: 2010Q2

REPORT INFORMATION
  Report Type: 
  Country: None (occurrence: None)
  Receive Date: 20100512
  Receipt Date: 20100512
  Transmission Date: 20101027
  Serious: Yes (Hospitalization)
  Sender: FDA-Public Use
  Company Number: None

PATIENT
  Age: 28 Year
  Sex: Male

DRUGS (1)
  1. TING INSIGHT PHARMACEUTICALS [Suspect]
     Dates: start: 20100401, end: 20100401

REACTIONS (3)
  - BURNS SECOND DEGREE [None]
  - SKIN EXFOLIATION [None]
  - SKIN IRRITATION [None]
